FAERS Safety Report 14805915 (Version 1)
Quarter: 2018Q2

REPORT INFORMATION
  Report Type: Spontaneous
  Country: JP (occurrence: JP)
  Receive Date: 20180425
  Receipt Date: 20180425
  Transmission Date: 20180711
  Serious: Yes (Hospitalization, Other)
  Sender: FDA-Public Use
  Company Number: JP-ELI_LILLY_AND_COMPANY-JP201711002985

PATIENT
  Age: 49 Year
  Sex: Male
  Weight: 64 kg

DRUGS (6)
  1. PACLITAXEL. [Concomitant]
     Active Substance: PACLITAXEL
     Indication: ADENOCARCINOMA GASTRIC
     Dosage: 130 MG, OTHER
     Route: 041
     Dates: start: 20170810, end: 20171023
  2. NAIXAN                             /00256201/ [Concomitant]
     Active Substance: NAPROXEN
     Indication: PROPHYLAXIS
     Dosage: 300 MG, DAILY
     Route: 048
     Dates: start: 20170802, end: 20171107
  3. OXINORM                            /00045603/ [Concomitant]
     Active Substance: OXYCODONE HYDROCHLORIDE
     Dosage: UNK
     Dates: start: 20170908
  4. FERROMIA [Concomitant]
     Active Substance: SODIUM FERROUS CITRATE
     Indication: IRON DEFICIENCY ANAEMIA
     Dosage: 100 MG, DAILY
     Route: 048
     Dates: end: 20171107
  5. CYRAMZA [Suspect]
     Active Substance: RAMUCIRUMAB
     Indication: ADENOCARCINOMA GASTRIC
     Dosage: 500 MG, OTHER
     Route: 041
     Dates: start: 20170810, end: 20171023
  6. NEXIUM [Concomitant]
     Active Substance: ESOMEPRAZOLE MAGNESIUM
     Dosage: 20 MG, DAILY
     Route: 048
     Dates: end: 20171107

REACTIONS (3)
  - Pyrexia [Recovered/Resolved]
  - Malignant neoplasm progression [Unknown]
  - Tumour perforation [Recovering/Resolving]

NARRATIVE: CASE EVENT DATE: 20171030
